FAERS Safety Report 6149728-6 (Version None)
Quarter: 2009Q2

REPORT INFORMATION
  Report Type: 
  Country: None (occurrence: None)
  Receive Date: 20090409
  Receipt Date: 20090401
  Transmission Date: 20091009
  Serious: Yes (Hospitalization)
  Sender: FDA-Public Use
  Company Number: US-ASTRAZENECA-2009UW08168

PATIENT
  Age: 51 Year
  Sex: Female
  Weight: 93 kg

DRUGS (10)
  1. NEXIUM [Suspect]
     Route: 048
  2. ADVAIR HFA [Concomitant]
     Indication: ASTHMA
     Dosage: 500/50
  3. ALPRAZOLAM [Concomitant]
     Indication: ANXIETY
  4. BUTROPAN [Concomitant]
     Indication: DEPRESSION
  5. LEXAPRO [Concomitant]
     Indication: DEPRESSION
  6. PROVENTOL [Concomitant]
     Indication: ASTHMA
  7. SINGULAIR [Concomitant]
     Indication: ASTHMA
  8. SYNTHROID [Concomitant]
     Indication: THYROID DISORDER
  9. ZOLPIDEM [Concomitant]
     Indication: SLEEP DISORDER
  10. ZOPINOX [Concomitant]
     Indication: ASTHMA

REACTIONS (3)
  - ASTHMA [None]
  - GASTROOESOPHAGEAL REFLUX DISEASE [None]
  - HIATUS HERNIA [None]
